FAERS Safety Report 5331584-7 (Version None)
Quarter: 2007Q2

REPORT INFORMATION
  Report Type: 
  Country: None (occurrence: None)
  Receive Date: 20070522
  Receipt Date: 20070510
  Transmission Date: 20071010
  Serious: Yes (Disabling, Other)
  Sender: FDA-Public Use
  Company Number: NZ-PFIZER INC-2007032115

PATIENT
  Sex: Female

DRUGS (3)
  1. ZYVOX [Suspect]
     Indication: MYCOBACTERIUM FORTUITUM INFECTION
     Route: 048
     Dates: start: 20061108, end: 20070312
  2. ZYVOX [Suspect]
     Indication: MYCOBACTERIAL INFECTION
  3. MOXIFLOXACIN HCL [Concomitant]
     Route: 048
     Dates: start: 20061108, end: 20070312

REACTIONS (1)
  - PARAESTHESIA [None]
